FAERS Safety Report 6015018-5 (Version None)
Quarter: 2008Q4

REPORT INFORMATION
  Report Type: 
  Country: None (occurrence: None)
  Receive Date: 20081221
  Receipt Date: 20081210
  Transmission Date: 20090506
  Serious: Yes (Hospitalization)
  Sender: FDA-Public Use
  Company Number: PHHY2008TR31388

PATIENT
  Age: 26 Year
  Sex: Female

DRUGS (2)
  1. FORADIL COMBI [Suspect]
     Dosage: 40 FORADIL AND 40 MIFLONID CAPSULES
     Route: 048
  2. MIFLONID [Suspect]
     Dosage: 40 CAPSULES
     Route: 048

REACTIONS (2)
  - INTENTIONAL OVERDOSE [None]
  - SUICIDE ATTEMPT [None]
